FAERS Safety Report 5227808-7 (Version None)
Quarter: 2007Q1

REPORT INFORMATION
  Report Type: 
  Country: None (occurrence: None)
  Receive Date: 20070202
  Receipt Date: 20070123
  Transmission Date: 20070707
  Serious: Yes (Hospitalization)
  Sender: FDA-Public Use
  Company Number: DE-PFIZER INC-2007006742

PATIENT
  Sex: Female
  Weight: 76 kg

DRUGS (3)
  1. CELEBREX [Suspect]
     Indication: PROCEDURAL PAIN
     Route: 048
  2. GODAMED [Concomitant]
     Route: 048
  3. ALL OTHER THERAPEUTIC PRODUCTS [Concomitant]
     Route: 048

REACTIONS (3)
  - DERMATITIS ALLERGIC [None]
  - HYPONATRAEMIA [None]
  - MYOSITIS [None]
